FAERS Safety Report 12310947 (Version 1)
Quarter: 2016Q2

REPORT INFORMATION
  Report Type: Spontaneous
  Country: US (occurrence: US)
  Receive Date: 20160427
  Receipt Date: 20160427
  Transmission Date: 20160815
  Serious: No
  Sender: FDA-Public Use
  Company Number: US-PFIZER INC-2016184475

PATIENT
  Age: 64 Year
  Sex: Male
  Weight: 86 kg

DRUGS (2)
  1. EPLERENONE. [Suspect]
     Active Substance: EPLERENONE
     Dosage: UNK
  2. INSPRA [Suspect]
     Active Substance: EPLERENONE
     Indication: BLOOD PRESSURE MANAGEMENT
     Dosage: 25 MG, 1X/DAY
     Route: 048
     Dates: start: 20130418

REACTIONS (3)
  - Vertigo [Unknown]
  - Vision blurred [Unknown]
  - Fluid retention [Unknown]
